FAERS Safety Report 24299739 (Version 1)
Quarter: 2024Q3

REPORT INFORMATION
  Report Type: Spontaneous
  Country: US (occurrence: US)
  Receive Date: 20240909
  Receipt Date: 20240909
  Transmission Date: 20241017
  Serious: Yes (Death, Other)
  Sender: JAZZ
  Company Number: US-JAZZ PHARMACEUTICALS-2023-US-021312

PATIENT
  Age: 10 Year
  Sex: Female
  Weight: 45.4 kg

DRUGS (4)
  1. RYLAZE [Suspect]
     Active Substance: ASPARAGINASE ERWINIA CHRYSANTHEMI (RECOMBINANT)-RYWN
     Indication: Acute lymphocytic leukaemia
     Dosage: 50 MILLIGRAM/SQ. METER, TID
     Route: 030
     Dates: start: 20230607, end: 20230616
  2. RYLAZE [Suspect]
     Active Substance: ASPARAGINASE ERWINIA CHRYSANTHEMI (RECOMBINANT)-RYWN
     Dosage: 64.5 MILLIGRAM
  3. CYTARABINE [Concomitant]
     Active Substance: CYTARABINE
     Indication: Product used for unknown indication
     Dosage: UNK
     Dates: start: 20230607, end: 20230610
  4. MERCAPTOPURINE [Concomitant]
     Active Substance: MERCAPTOPURINE
     Indication: Product used for unknown indication
     Dosage: UNK
     Dates: start: 20230531, end: 20230613

REACTIONS (10)
  - Septic shock [Fatal]
  - Necrotising fasciitis [Fatal]
  - Cardiac arrest [Unknown]
  - Groin pain [Unknown]
  - Pain in extremity [Unknown]
  - Lymphadenopathy [Unknown]
  - Escherichia test positive [Unknown]
  - Enterobacter test positive [Unknown]
  - Culture wound positive [Unknown]
  - Blood culture positive [Unknown]

NARRATIVE: CASE EVENT DATE: 20230616
